FAERS Safety Report 17006565 (Version 1)
Quarter: 2019Q4

REPORT INFORMATION
  Report Type: Spontaneous
  Country: US (occurrence: US)
  Receive Date: 20190927
  Receipt Date: 20190927
  Transmission Date: 20200122
  Serious: No
  Sender: FDA-Public Use
  Company Number: None

PATIENT
  Age: 17 Year
  Sex: Female

DRUGS (1)
  1. CEFAZOLIN SODIUM. [Suspect]
     Active Substance: CEFAZOLIN SODIUM
     Indication: STAPHYLOCOCCAL INFECTION
     Dosage: ?          OTHER FREQUENCY:Q8H;?
     Route: 042
     Dates: start: 20190925

REACTIONS (1)
  - Mast cell activation syndrome [None]

NARRATIVE: CASE EVENT DATE: 20190925
